FAERS Safety Report 6840423-4 (Version None)
Quarter: 2010Q3

REPORT INFORMATION
  Report Type: 
  Country: None (occurrence: None)
  Receive Date: 20100714
  Receipt Date: 20100705
  Transmission Date: 20110219
  Serious: Yes (Other)
  Sender: FDA-Public Use
  Company Number: GXKR2010RU07507

PATIENT
  Age: 27 Year
  Sex: Female

DRUGS (2)
  1. AMOXICILLIN + CLAVULANATE POTASSIUM (NGX) [Suspect]
     Indication: PYELONEPHRITIS CHRONIC
     Dosage: 600 MG/DAY
     Route: 042
     Dates: start: 20100612, end: 20100612
  2. SODIUM CHLORIDE [Concomitant]
     Dosage: 200 ML, UNK

REACTIONS (5)
  - ANXIETY [None]
  - DYSPNOEA [None]
  - HEADACHE [None]
  - PAIN [None]
  - PYREXIA [None]
